FAERS Safety Report 11779266 (Version 1)
Quarter: 2015Q4

REPORT INFORMATION
  Report Type: Spontaneous
  Country: DE (occurrence: UY)
  Receive Date: 20151125
  Receipt Date: 20151125
  Transmission Date: 20160304
  Serious: Yes (Death, Life-Threatening, Other)
  Sender: FDA-Public Use
  Company Number: DE-ACTELION-A-NJ2015-127903

PATIENT
  Age: 13 Year
  Sex: Male

DRUGS (4)
  1. SILDENAFIL. [Concomitant]
     Active Substance: SILDENAFIL
  2. ACETYLSALICYLIC ACID [Concomitant]
     Active Substance: ASPIRIN
  3. FUROSEMIDE. [Concomitant]
     Active Substance: FUROSEMIDE
  4. VENTAVIS [Suspect]
     Active Substance: ILOPROST
     Indication: PULMONARY ARTERIAL HYPERTENSION
     Dosage: 1 DF, 6/D
     Route: 055
     Dates: start: 20151106, end: 2015

REACTIONS (2)
  - Off label use [Unknown]
  - Right ventricular failure [Fatal]
